FAERS Safety Report 8237965-6 (Version None)
Quarter: 2012Q1

REPORT INFORMATION
  Report Type: 
  Country: None (occurrence: None)
  Receive Date: 20120327
  Receipt Date: 20120315
  Transmission Date: 20120608
  Serious: Yes (Other)
  Sender: FDA-Public Use
  Company Number: GB-TEVA-329631ISR

PATIENT
  Age: 26 Year
  Sex: Female

DRUGS (2)
  1. DEPO-PROVERA [Suspect]
     Dosage: UNK
  2. WARFARIN SODIUM [Suspect]
     Indication: PULMONARY EMBOLISM

REACTIONS (2)
  - PULMONARY EMBOLISM [None]
  - ATRIAL FIBRILLATION [None]
